FAERS Safety Report 17948256 (Version 10)
Quarter: 2024Q1

REPORT INFORMATION
  Report Type: Spontaneous
  Country: US (occurrence: US)
  Receive Date: 20200626
  Receipt Date: 20240304
  Transmission Date: 20240410
  Serious: No
  Sender: FDA-Public Use
  Company Number: US-PFIZER INC-2020184760

PATIENT
  Age: 72 Year
  Sex: Female

DRUGS (12)
  1. ENBREL [Suspect]
     Active Substance: ETANERCEPT
     Indication: Product used for unknown indication
     Dosage: UNK
     Route: 065
     Dates: start: 202001
  2. PANTOPRAZOLE [Concomitant]
     Active Substance: PANTOPRAZOLE
     Dosage: UNK
  3. SUCRALFATE [Concomitant]
     Active Substance: SUCRALFATE
     Dosage: UNK
  4. AMLODIPINE [Concomitant]
     Active Substance: AMLODIPINE BESYLATE
     Dosage: UNK
  5. DULOXETINE [Concomitant]
     Active Substance: DULOXETINE
     Dosage: UNK
  6. MIRALAX [Concomitant]
     Active Substance: POLYETHYLENE GLYCOL 3350
     Dosage: UNK
  7. FIBER [Concomitant]
     Dosage: UNK
  8. VITAMINS [Concomitant]
     Active Substance: VITAMINS
     Dosage: UNK
  9. SILVER [Concomitant]
     Active Substance: SILVER
     Dosage: UNK
  10. VITAMIN D [Concomitant]
     Active Substance: VITAMIN D NOS
     Dosage: UNK
  11. GABAPENTIN [Concomitant]
     Active Substance: GABAPENTIN
     Dosage: UNK
  12. RECLAST [Concomitant]
     Active Substance: ZOLEDRONIC ACID
     Dosage: UNK

REACTIONS (3)
  - Treatment failure [Unknown]
  - Drug hypersensitivity [Unknown]
  - Hypertension [Unknown]
